FAERS Safety Report 8029164-8 (Version None)
Quarter: 2012Q1

REPORT INFORMATION
  Report Type: 
  Country: None (occurrence: None)
  Receive Date: 20120106
  Receipt Date: 20120104
  Transmission Date: 20120608
  Serious: Yes (Hospitalization)
  Sender: FDA-Public Use
  Company Number: PHHY2011FR105565

PATIENT
  Sex: Female
  Weight: 65 kg

DRUGS (2)
  1. HYDREA [Concomitant]
     Indication: SICKLE CELL ANAEMIA
     Dosage: 2 DF/DAY
     Dates: start: 20101021
  2. EXJADE [Suspect]
     Indication: IRON OVERLOAD
     Dosage: 1500 MG, DAILY
     Route: 048
     Dates: start: 20100420

REACTIONS (3)
  - URINARY TRACT INFECTION [None]
  - HAEMOLYSIS [None]
  - ESCHERICHIA BACTERAEMIA [None]
